FAERS Safety Report 7074667-6 (Version None)
Quarter: 2010Q4

REPORT INFORMATION
  Report Type: 
  Country: None (occurrence: None)
  Receive Date: 20101029
  Receipt Date: 20101022
  Transmission Date: 20110411
  Serious: Yes (Other)
  Sender: FDA-Public Use
  Company Number: B0680888A

PATIENT
  Age: 36 Year
  Sex: Male

DRUGS (5)
  1. LAMOTRIGINE [Suspect]
     Route: 065
  2. VALPROIC ACID [Suspect]
     Route: 065
  3. CLOZAPINE [Concomitant]
  4. OLANZAPINE [Concomitant]
  5. VENLAFAXINE [Concomitant]

REACTIONS (8)
  - ACUTE RESPIRATORY FAILURE [None]
  - DIARRHOEA [None]
  - HYPERSENSITIVITY [None]
  - ILEUS PARALYTIC [None]
  - PERICARDITIS [None]
  - PYREXIA [None]
  - SEPSIS [None]
  - SOMNOLENCE [None]
